FAERS Safety Report 19267798 (Version 1)
Quarter: 2021Q2

REPORT INFORMATION
  Report Type: Report from Study
  Country: US (occurrence: US)
  Receive Date: 20210518
  Receipt Date: 20210518
  Transmission Date: 20210717
  Serious: Yes (Hospitalization)
  Sender: FDA-Public Use
  Company Number: US-GILEAD-2021-0530404

PATIENT
  Age: 12 Year
  Sex: Female

DRUGS (1)
  1. AZTREONAM LYSINE [Suspect]
     Active Substance: AZTREONAM LYSINE
     Indication: CYSTIC FIBROSIS
     Dosage: 75 MG, TID, 28 DAYS ON AND 28 DAYS OFF.
     Route: 055
     Dates: start: 202102

REACTIONS (6)
  - Blood potassium decreased [Unknown]
  - Decreased appetite [Unknown]
  - Forced expiratory volume [Unknown]
  - Protein urine present [Unknown]
  - Oropharyngeal pain [Recovered/Resolved]
  - Fatigue [Unknown]

NARRATIVE: CASE EVENT DATE: 202104
